FAERS Safety Report 13077859 (Version 1)
Quarter: 2017Q1

REPORT INFORMATION
  Report Type: Spontaneous
  Country: US (occurrence: US)
  Receive Date: 20170102
  Receipt Date: 20170102
  Transmission Date: 20170428
  Serious: No
  Sender: FDA-Public Use
  Company Number: US-ASTRAZENECA-2016SF34918

PATIENT
  Age: 25664 Day

DRUGS (4)
  1. BRILINTA [Suspect]
     Active Substance: TICAGRELOR
     Indication: STENT PLACEMENT
     Route: 048
     Dates: start: 20160407
  2. BYDUREON [Concomitant]
     Active Substance: EXENATIDE
  3. BYETTA [Concomitant]
     Active Substance: EXENATIDE
  4. MYALEPT [Concomitant]
     Active Substance: METRELEPTIN

REACTIONS (1)
  - Chills [Unknown]

NARRATIVE: CASE EVENT DATE: 20161217
